FAERS Safety Report 9648178 (Version 3)
Quarter: 2013Q4

REPORT INFORMATION
  Report Type: Report from Study
  Country: US (occurrence: US)
  Receive Date: 20131028
  Receipt Date: 20131226
  Transmission Date: 20140711
  Serious: Yes (Hospitalization)
  Sender: FDA-Public Use
  Company Number: PHEH2013US022369

PATIENT
  Age: 43 Year
  Sex: Female

DRUGS (3)
  1. GILENYA [Suspect]
     Indication: MULTIPLE SCLEROSIS
     Dosage: 0.5 MG, QD
     Route: 048
     Dates: start: 20120928
  2. GILENYA [Suspect]
     Dosage: 0.5 MG, QD
     Route: 048
  3. NORVASC [Concomitant]

REACTIONS (5)
  - Multiple sclerosis relapse [Recovering/Resolving]
  - Optic nerve disorder [Recovering/Resolving]
  - Visual acuity reduced [Recovering/Resolving]
  - Oropharyngeal pain [Recovering/Resolving]
  - Pyrexia [Recovering/Resolving]
